FAERS Safety Report 23145584 (Version 1)
Quarter: 2023Q4

REPORT INFORMATION
  Report Type: Spontaneous
  Country: US (occurrence: US)
  Receive Date: 20231103
  Receipt Date: 20231103
  Transmission Date: 20240110
  Serious: Yes (Death, Other)
  Sender: FDA-Public Use
  Company Number: US-EPICPHARMA-US-2023EPCLIT01581

PATIENT
  Age: 70 Year
  Sex: Male

DRUGS (1)
  1. AMIODARONE HYDROCHLORIDE [Suspect]
     Active Substance: AMIODARONE HYDROCHLORIDE
     Indication: Atrial fibrillation
     Route: 065

REACTIONS (12)
  - Multiple organ dysfunction syndrome [Fatal]
  - Lung opacity [Fatal]
  - Interstitial lung disease [Fatal]
  - Ejection fraction decreased [Fatal]
  - Hypertransaminasaemia [Fatal]
  - Toxicity to various agents [Fatal]
  - Acute respiratory distress syndrome [Fatal]
  - Pulmonary alveolar haemorrhage [Fatal]
  - Dyspnoea [Fatal]
  - Thyroxine free increased [Fatal]
  - Blood thyroid stimulating hormone decreased [Fatal]
  - Product use in unapproved indication [Unknown]
